FAERS Safety Report 9350669 (Version 2)
Quarter: 2013Q3

REPORT INFORMATION
  Report Type: Report from Study
  Country: US (occurrence: US)
  Receive Date: 20130617
  Receipt Date: 20130701
  Transmission Date: 20140515
  Serious: Yes (Hospitalization)
  Sender: FDA-Public Use
  Company Number: PHHO2013US007940

PATIENT
  Age: 72 Year
  Sex: Male
  Weight: 95.5 kg

DRUGS (6)
  1. CERTICAN [Suspect]
     Indication: LIVER TRANSPLANT
     Dosage: 2 MG, BID
     Route: 048
     Dates: start: 20111101
  2. AMLODIPINE [Concomitant]
     Indication: HYPERTENSION
     Dosage: 10 MG, QD
     Route: 048
     Dates: start: 20110115
  3. ATENOLOL [Concomitant]
     Indication: HYPERTENSION
     Dosage: 50 MG, QD
     Route: 048
     Dates: start: 20091002
  4. ZETIA [Concomitant]
     Indication: HYPERCHOLESTEROLAEMIA
     Dosage: 10 MG, QD
     Route: 048
     Dates: start: 20110113
  5. PRAVASTATIN [Concomitant]
     Indication: HYPERCHOLESTEROLAEMIA
     Dosage: 40 MG, QD
     Route: 048
     Dates: start: 20100205
  6. LOVAZA [Concomitant]
     Indication: HYPERLIPIDAEMIA
     Dosage: 1 G, BID
     Route: 048
     Dates: start: 20100422

REACTIONS (1)
  - Coronary artery stenosis [Recovering/Resolving]
